APPROVED DRUG PRODUCT: HYDROCHLOROTHIAZIDE
Active Ingredient: HYDROCHLOROTHIAZIDE
Strength: 50MG
Dosage Form/Route: TABLET;ORAL
Application: A203018 | Product #002 | TE Code: AB
Applicant: SCIEGEN PHARMACEUTICALS INC
Approved: Jul 23, 2014 | RLD: No | RS: No | Type: RX